FAERS Safety Report 9192962 (Version 1)
Quarter: 2013Q1

REPORT INFORMATION
  Report Type: Spontaneous
  Country: SE (occurrence: SE)
  Receive Date: 20130327
  Receipt Date: 20130327
  Transmission Date: 20140127
  Serious: Yes (Other)
  Sender: FDA-Public Use
  Company Number: PHHY2013SE028028

PATIENT
  Age: 48 Year
  Sex: Male

DRUGS (1)
  1. DICLOFENAC SANDOZ [Suspect]
     Indication: PAIN
     Route: 048
     Dates: end: 20120704

REACTIONS (15)
  - Dysphonia [Unknown]
  - Cough [Unknown]
  - Pyrexia [Unknown]
  - Weight decreased [Unknown]
  - Parosmia [Unknown]
  - Haematocrit decreased [Unknown]
  - Splenomegaly [Unknown]
  - Muscular weakness [Unknown]
  - Oral fungal infection [Unknown]
  - Amnesia [Unknown]
  - Renal failure [Unknown]
  - Abdominal pain [Unknown]
  - Decreased appetite [Unknown]
  - Rash [Unknown]
  - Dysgeusia [Unknown]
